FAERS Safety Report 9064898 (Version 5)
Quarter: 2018Q1

REPORT INFORMATION
  Report Type: Spontaneous
  Country: JP (occurrence: JP)
  Receive Date: 20130206
  Receipt Date: 20180215
  Transmission Date: 20180509
  Serious: Yes (Hospitalization)
  Sender: FDA-Public Use
  Company Number: JP-ROCHE-1187254

PATIENT
  Age: 61 Year
  Sex: Male

DRUGS (3)
  1. ELPLAT [Concomitant]
     Active Substance: OXALIPLATIN
     Indication: RECTAL CANCER METASTATIC
     Dosage: DOSAGE IS UNCERTAIN. ?TWO COURSES
     Route: 041
  2. XELODA [Suspect]
     Active Substance: CAPECITABINE
     Indication: RECTAL CANCER METASTATIC
     Dosage: DOSAGE IS UNCERTAIN. ?TWO COURSES
     Route: 048
  3. XELODA [Suspect]
     Active Substance: CAPECITABINE
     Indication: RECTAL CANCER METASTATIC
     Dosage: IT IS ONE ADMINISTERING WEEKLY HOLIDAY MEDICINE FOR TWO WEEKS.
     Route: 048

REACTIONS (4)
  - Pelvic abscess [Recovered/Resolved]
  - Gastrointestinal stoma necrosis [Recovered/Resolved]
  - Neuropathy peripheral [Unknown]
  - Wound dehiscence [Recovered/Resolved]
